FAERS Safety Report 13535880 (Version 1)
Quarter: 2017Q2

REPORT INFORMATION
  Report Type: Spontaneous
  Country: US (occurrence: US)
  Receive Date: 20170511
  Receipt Date: 20170511
  Transmission Date: 20170830
  Serious: Yes (Other)
  Sender: FDA-Public Use
  Company Number: US-PROCTER_AND_GAMBLE-GS17050770

PATIENT
  Age: 86 Year
  Sex: Female

DRUGS (1)
  1. CREST [Suspect]
     Active Substance: SODIUM FLUORIDE
     Indication: DENTAL CARE
     Dosage: SMALL AMOUNT
     Route: 002

REACTIONS (4)
  - Gingival disorder [Not Recovered/Not Resolved]
  - Expired product administered [Unknown]
  - Tooth loss [Recovered/Resolved]
  - Device damage [Recovered/Resolved]

NARRATIVE: CASE EVENT DATE: 20170421
